FAERS Safety Report 9695513 (Version 2)
Quarter: 2014Q1

REPORT INFORMATION
  Report Type: Spontaneous
  Country: US (occurrence: US)
  Receive Date: 20131119
  Receipt Date: 20140304
  Transmission Date: 20141002
  Serious: No
  Sender: FDA-Public Use
  Company Number: US-PFIZER INC-2013329775

PATIENT
  Age: 56 Year
  Sex: Female
  Weight: 58.96 kg

DRUGS (11)
  1. LYRICA [Suspect]
     Indication: HYPOAESTHESIA
     Dosage: UNK
     Dates: start: 2013, end: 2014
  2. LYRICA [Suspect]
     Indication: HYPOAESTHESIA
  3. LYRICA [Suspect]
     Indication: HYPOAESTHESIA
  4. LYRICA [Suspect]
     Indication: HYPOAESTHESIA
  5. LYRICA [Suspect]
     Indication: PARAESTHESIA
  6. LYRICA [Suspect]
     Indication: PARAESTHESIA
  7. PREMARIN [Suspect]
     Dosage: UNK
  8. ALBUTEROL [Concomitant]
     Indication: ASTHMA
     Dosage: UNK (EVERY SIX HOURS), AS NEEDED
  9. ALBUTEROL [Concomitant]
     Indication: CHRONIC OBSTRUCTIVE PULMONARY DISEASE
  10. WELLBUTRIN [Concomitant]
     Indication: DEPRESSION
     Dosage: 150 MG, 2X/DAY
  11. FLEXERIL [Concomitant]
     Indication: MUSCLE SPASMS
     Dosage: 10 MG, 2X/DAY

REACTIONS (4)
  - Paraesthesia [Unknown]
  - Hypoaesthesia [Unknown]
  - Malaise [Unknown]
  - Local swelling [Unknown]
